FAERS Safety Report 9368185 (Version 1)
Quarter: 2013Q2

REPORT INFORMATION
  Report Type: Spontaneous
  Country: US (occurrence: US)
  Receive Date: 20130625
  Receipt Date: 20130625
  Transmission Date: 20140414
  Serious: Yes (Other)
  Sender: FDA-Public Use
  Company Number: US-ASTELLAS-2013US003616

PATIENT
  Age: 48 Year
  Sex: Male
  Weight: 127 kg

DRUGS (2)
  1. VESICARE [Suspect]
     Indication: PRODUCT USED FOR UNKNOWN INDICATION
     Dosage: 5 MG, UID/QD
     Route: 048
     Dates: start: 201211
  2. VESICARE [Suspect]
     Dosage: 10 MG, UID/QD
     Route: 048
     Dates: end: 201301

REACTIONS (2)
  - Oropharyngeal pain [Recovered/Resolved]
  - Dry mouth [Recovered/Resolved]
